FAERS Safety Report 16737337 (Version 1)
Quarter: 2019Q3

REPORT INFORMATION
  Report Type: Spontaneous
  Country: EE (occurrence: EE)
  Receive Date: 20190823
  Receipt Date: 20190823
  Transmission Date: 20191005
  Serious: Yes (Death, Other)
  Sender: FDA-Public Use
  Company Number: EE-JNJFOC-20190827886

PATIENT
  Age: 80 Year
  Sex: Male
  Weight: 90 kg

DRUGS (11)
  1. HALOPERIDOL. [Suspect]
     Active Substance: HALOPERIDOL
     Dosage: IN TOTAL
     Route: 048
     Dates: start: 20190627, end: 20190627
  2. ZOPICLONE [Concomitant]
     Active Substance: ZOPICLONE
     Indication: PRODUCT USED FOR UNKNOWN INDICATION
  3. HALOPERIDOL. [Suspect]
     Active Substance: HALOPERIDOL
     Dosage: IN TOTAL
     Route: 048
     Dates: start: 20190630, end: 20190630
  4. LORAZEPAM. [Concomitant]
     Active Substance: LORAZEPAM
     Indication: PRODUCT USED FOR UNKNOWN INDICATION
  5. DEXDOR [Concomitant]
     Active Substance: DEXMEDETOMIDINE HYDROCHLORIDE
     Route: 065
  6. TORASEMIDE [Concomitant]
     Active Substance: TORSEMIDE
     Indication: PRODUCT USED FOR UNKNOWN INDICATION
  7. CIPROFLOXACIN. [Concomitant]
     Active Substance: CIPROFLOXACIN
     Indication: PRODUCT USED FOR UNKNOWN INDICATION
  8. HALOPERIDOL. [Suspect]
     Active Substance: HALOPERIDOL
     Dosage: IN TOTAL
     Route: 048
     Dates: start: 20190626, end: 20190626
  9. ENALAPRIL [Concomitant]
     Active Substance: ENALAPRIL
     Indication: PRODUCT USED FOR UNKNOWN INDICATION
  10. HALOPERIDOL. [Suspect]
     Active Substance: HALOPERIDOL
     Indication: POSTOPERATIVE DELIRIUM
     Dosage: IN TOTAL
     Route: 048
     Dates: start: 20190628, end: 20190629
  11. ENOXAPARIN SODIUM. [Concomitant]
     Active Substance: ENOXAPARIN SODIUM
     Indication: PRODUCT USED FOR UNKNOWN INDICATION

REACTIONS (7)
  - Pulmonary embolism [Fatal]
  - Coordination abnormal [Fatal]
  - Cardiopulmonary failure [Fatal]
  - Oedema peripheral [Fatal]
  - Speech disorder [Fatal]
  - Dysphagia [Fatal]
  - Confusional state [Fatal]

NARRATIVE: CASE EVENT DATE: 20190626
